FAERS Safety Report 4340966-1 (Version None)
Quarter: 2004Q2

REPORT INFORMATION
  Report Type: 
  Country: None (occurrence: None)
  Receive Date: 20040413
  Receipt Date: 20040330
  Transmission Date: 20050107
  Serious: Yes (Hospitalization)
  Sender: FDA-Public Use
  Company Number: 2004206993JP

PATIENT
  Sex: Female

DRUGS (1)
  1. SOLU-MEDROL [Suspect]
     Indication: SUDDEN HEARING LOSS
     Dosage: 250 MG, QD, IV
     Route: 042

REACTIONS (5)
  - EYELID OEDEMA [None]
  - INFUSION RELATED REACTION [None]
  - PRURITUS [None]
  - RHINORRHOEA [None]
  - URTICARIA [None]
